FAERS Safety Report 23463578 (Version 2)
Quarter: 2024Q1

REPORT INFORMATION
  Report Type: Other
  Country: KR (occurrence: None)
  Receive Date: 20240131
  Receipt Date: 20240202
  Transmission Date: 20240409
  Serious: Yes (Other)
  Sender: FDA-Public Use
  Company Number: KR-ROCHE-3497634

PATIENT

DRUGS (2)
  1. ATEZOLIZUMAB [Suspect]
     Active Substance: ATEZOLIZUMAB
     Indication: Hepatocellular carcinoma
     Route: 065
  2. BEVACIZUMAB [Suspect]
     Active Substance: BEVACIZUMAB
     Indication: Hepatocellular carcinoma
     Route: 065

REACTIONS (5)
  - Haemoptysis [Unknown]
  - Pneumonitis [Unknown]
  - Bleeding varicose vein [Unknown]
  - Duodenal ulcer perforation [Unknown]
  - Autoimmune hepatitis [Unknown]
